FAERS Safety Report 6831435-5 (Version None)
Quarter: 2010Q3

REPORT INFORMATION
  Report Type: 
  Country: None (occurrence: None)
  Receive Date: 20100712
  Receipt Date: 20100618
  Transmission Date: 20110219
  Serious: Yes (Hospitalization)
  Sender: FDA-Public Use
  Company Number: PHHO2010US07243

PATIENT
  Sex: Female
  Weight: 68 kg

DRUGS (3)
  1. ZOLEDRONATE T29581+ [Suspect]
     Indication: MULTIPLE MYELOMA
     Dosage: 4 MG, UNK
     Route: 042
     Dates: start: 20081121
  2. VITAMIN D [Concomitant]
     Dosage: UNK
  3. CALCIUM [Concomitant]

REACTIONS (7)
  - CHEST DISCOMFORT [None]
  - CHILLS [None]
  - CONTUSION [None]
  - DEVICE RELATED INFECTION [None]
  - NASAL CONGESTION [None]
  - PAIN [None]
  - PYREXIA [None]
